FAERS Safety Report 4373981-2 (Version None)
Quarter: 2004Q1

REPORT INFORMATION
  Report Type: 
  Country: None (occurrence: None)
  Receive Date: 20040305
  Receipt Date: 20031212
  Transmission Date: 20041129
  Serious: Yes (Other)
  Sender: FDA-Public Use
  Company Number: 2003UW16675

PATIENT

DRUGS (2)
  1. CRESTOR [Suspect]
  2. ATORVASTATIN CALCIUM [Concomitant]

REACTIONS (1)
  - GASTRIC DISORDER [None]
